FAERS Safety Report 15678536 (Version 3)
Quarter: 2018Q4

REPORT INFORMATION
  Report Type: Spontaneous
  Country: CZ (occurrence: CZ)
  Receive Date: 20181201
  Receipt Date: 20181202
  Transmission Date: 20190205
  Serious: Yes (Other)
  Sender: FDA-Public Use
  Company Number: PHHY2018CZ169756

PATIENT
  Age: 46 Year
  Sex: Female

DRUGS (10)
  1. OXYCODONE HYDROCHLORIDE. [Suspect]
     Active Substance: OXYCODONE HYDROCHLORIDE
     Indication: CANCER PAIN
     Dosage: 10 MG, Q12H
     Route: 065
  2. DICLOFENAC [Suspect]
     Active Substance: DICLOFENAC
     Indication: CANCER PAIN
     Dosage: 50 MG, TID
     Route: 065
  3. AMITRIPTYLINE [Suspect]
     Active Substance: AMITRIPTYLINE
     Indication: CANCER PAIN
     Dosage: 12.5 MG, QD
     Route: 065
  4. OXYCODONE HYDROCHLORIDE. [Suspect]
     Active Substance: OXYCODONE HYDROCHLORIDE
     Dosage: 40 MG, BID
     Route: 065
  5. MORPHINUM [Suspect]
     Active Substance: MORPHINE
     Indication: CANCER PAIN
     Dosage: 5 MG, UNK
     Route: 065
  6. MORPHINUM [Suspect]
     Active Substance: MORPHINE
     Dosage: 20 MG, UNK
     Route: 065
  7. MORPHINUM [Suspect]
     Active Substance: MORPHINE
     Dosage: 120 MG, Q24H
     Route: 065
  8. DEXAMETHASONE. [Suspect]
     Active Substance: DEXAMETHASONE
     Indication: SPINAL CORD OEDEMA
     Dosage: 24 MG, QD
     Route: 058
  9. MORPHINUM [Suspect]
     Active Substance: MORPHINE
     Dosage: 10 MG, UNK
     Route: 065
  10. MORPHINUM [Suspect]
     Active Substance: MORPHINE
     Dosage: 20 MG, UNK
     Route: 058

REACTIONS (4)
  - Cancer pain [Not Recovered/Not Resolved]
  - Condition aggravated [Not Recovered/Not Resolved]
  - Drug ineffective [Unknown]
  - Spinal pain [Not Recovered/Not Resolved]
